FAERS Safety Report 7425458-5 (Version None)
Quarter: 2011Q2

REPORT INFORMATION
  Report Type: 
  Country: None (occurrence: None)
  Receive Date: 20110418
  Receipt Date: 20110418
  Transmission Date: 20111010
  Serious: Yes (Other)
  Sender: FDA-Public Use
  Company Number: None

PATIENT
  Age: 26 Year
  Sex: Male
  Weight: 65.7716 kg

DRUGS (1)
  1. ATRIPLA [Suspect]
     Indication: HIV INFECTION
     Dosage: 600MG PO QHS
     Route: 048
     Dates: start: 20110322, end: 20110404

REACTIONS (2)
  - RASH PAPULAR [None]
  - RASH PRURITIC [None]
